FAERS Safety Report 13270451 (Version 1)
Quarter: 2017Q1

REPORT INFORMATION
  Report Type: Spontaneous
  Country: US (occurrence: US)
  Receive Date: 20170224
  Receipt Date: 20170224
  Transmission Date: 20170428
  Serious: Yes (Other)
  Sender: FDA-Public Use
  Company Number: US-B.I. PHARMACEUTICALS,INC./RIDGEFIELD-2017-BI-009639

PATIENT
  Sex: Female

DRUGS (1)
  1. COMBIVENT [Suspect]
     Active Substance: ALBUTEROL SULFATE\IPRATROPIUM BROMIDE
     Indication: ASTHMA
     Dosage: 1 INHALATION 4 TO 6 TIMES DAILY;  FORM STRENGTH: 20 MCG / 100 MCG; FORMULATION: INHALATION SPRAY? AD
     Route: 055

REACTIONS (6)
  - Influenza [Recovered/Resolved]
  - Abasia [Recovered/Resolved]
  - Incorrect dose administered [Unknown]
  - Dyspnoea [Recovered/Resolved]
  - Off label use [Unknown]
  - Apparent death [Recovered/Resolved]

NARRATIVE: CASE EVENT DATE: 2017
